FAERS Safety Report 5511219-0 (Version None)
Quarter: 2007Q4

REPORT INFORMATION
  Report Type: 
  Country: None (occurrence: None)
  Receive Date: 20071109
  Receipt Date: 20071101
  Transmission Date: 20080405
  Serious: Yes (Other)
  Sender: FDA-Public Use
  Company Number: US-PURDUE-USA_2007_0029578

PATIENT
  Sex: Male

DRUGS (1)
  1. OXYCONTIN [Suspect]
     Indication: PAIN
     Dates: start: 20000101, end: 20010101

REACTIONS (2)
  - DRUG DEPENDENCE [None]
  - LOSS OF CONSCIOUSNESS [None]
